FAERS Safety Report 6425546-6 (Version None)
Quarter: 2009Q4

REPORT INFORMATION
  Report Type: 
  Country: None (occurrence: None)
  Receive Date: 20091103
  Receipt Date: 20091023
  Transmission Date: 20100525
  Serious: Yes (Hospitalization, Other)
  Sender: FDA-Public Use
  Company Number: JP-JNJFOC-20090608747

PATIENT
  Sex: Female

DRUGS (2)
  1. DOXORUBICIN HCL [Suspect]
     Route: 042
     Dates: start: 20090608, end: 20090715
  2. DOXORUBICIN HCL [Suspect]
     Indication: OVARIAN CANCER RECURRENT
     Route: 042
     Dates: start: 20090608, end: 20090715

REACTIONS (4)
  - ALANINE AMINOTRANSFERASE INCREASED [None]
  - GAMMA-GLUTAMYLTRANSFERASE INCREASED [None]
  - OEDEMA PERIPHERAL [None]
  - PYREXIA [None]
